FAERS Safety Report 7485693-7 (Version None)
Quarter: 2011Q2

REPORT INFORMATION
  Report Type: 
  Country: None (occurrence: None)
  Receive Date: 20110517
  Receipt Date: 20110510
  Transmission Date: 20111010
  Serious: Yes (Hospitalization)
  Sender: FDA-Public Use
  Company Number: US-GILEAD-2011-0036900

PATIENT
  Sex: Male

DRUGS (27)
  1. PRINIVIL [Concomitant]
  2. FEXOFENADINE [Concomitant]
  3. VALCYTE [Concomitant]
  4. MS CONTIN [Concomitant]
  5. MORPHINE SULFATE [Concomitant]
  6. DIAZEPAM [Concomitant]
  7. INTELENCE [Concomitant]
  8. PREZISTA [Concomitant]
  9. TRUVADA [Concomitant]
  10. MEPRON [Concomitant]
  11. SELZENTRY [Concomitant]
  12. LETAIRIS [Suspect]
     Indication: PULMONARY HYPERTENSION
     Route: 048
     Dates: start: 20100225
  13. NALBUPINE [Concomitant]
  14. NORVIR [Concomitant]
  15. SANTYL [Concomitant]
  16. MIRALAX [Concomitant]
  17. REVATIO [Concomitant]
  18. FLUCONAZOLE [Concomitant]
  19. PROMETHAZINE [Concomitant]
  20. PHENADOZ [Concomitant]
  21. SPIRIVA [Concomitant]
  22. AZITHROMYCIN [Concomitant]
  23. LETAIRIS [Suspect]
     Indication: HIV INFECTION
  24. SYMBICORT [Concomitant]
  25. ASPIRIN [Concomitant]
  26. PRILOSEC [Concomitant]
  27. ZINC SULFATE [Concomitant]

REACTIONS (5)
  - SKIN ULCER [None]
  - INTESTINAL OBSTRUCTION [None]
  - LABORATORY TEST ABNORMAL [None]
  - GASTROINTESTINAL DISORDER [None]
  - MALABSORPTION [None]
